FAERS Safety Report 11429295 (Version 1)
Quarter: 2015Q3

REPORT INFORMATION
  Report Type: Spontaneous
  Country: US (occurrence: US)
  Receive Date: 20150828
  Receipt Date: 20150828
  Transmission Date: 20151125
  Serious: No
  Sender: FDA-Public Use
  Company Number: US-ROCHE-1214788

PATIENT
  Sex: Female

DRUGS (4)
  1. PEGASYS [Suspect]
     Active Substance: PEGINTERFERON ALFA-2A
     Dosage: IN DIVIDED DOSES 400/400
     Route: 058
  2. PEGASYS [Suspect]
     Active Substance: PEGINTERFERON ALFA-2A
     Indication: CHRONIC HEPATITIS C
     Route: 058
     Dates: start: 20130312
  3. RIBAVIRIN. [Suspect]
     Active Substance: RIBAVIRIN
     Indication: CHRONIC HEPATITIS C
     Dosage: DAILY IN DIVIDED DOSES
     Route: 065
     Dates: start: 20130312, end: 201304
  4. RIBAVIRIN. [Suspect]
     Active Substance: RIBAVIRIN
     Dosage: DAILY IN DIVIDED DOSES 400/400
     Route: 065
     Dates: start: 201304

REACTIONS (7)
  - Skin haemorrhage [Unknown]
  - Foreign body sensation in eyes [Unknown]
  - Visual acuity reduced [Unknown]
  - Alopecia [Unknown]
  - Dermatitis [Unknown]
  - Photophobia [Unknown]
  - Eye irritation [Unknown]
